FAERS Safety Report 7223182-5 (Version None)
Quarter: 2011Q1

REPORT INFORMATION
  Report Type: 
  Country: None (occurrence: None)
  Receive Date: 20110112
  Receipt Date: 20100226
  Transmission Date: 20110831
  Serious: No
  Sender: FDA-Public Use
  Company Number: US-ALLERGAN-1002576US

PATIENT
  Sex: Female

DRUGS (7)
  1. HYZAAR [Concomitant]
  2. ZOCOR [Concomitant]
  3. GENTEAL [Concomitant]
  4. RESTASIS [Suspect]
     Indication: DRY EYE
     Dosage: UNK
     Route: 047
     Dates: start: 20100126
  5. SYNTHROID [Concomitant]
  6. ZETIA [Concomitant]
  7. CLEAR EYES [Concomitant]

REACTIONS (4)
  - HEADACHE [None]
  - DIZZINESS [None]
  - EYE SWELLING [None]
  - EYE IRRITATION [None]
